FAERS Safety Report 5090077-5 (Version None)
Quarter: 2006Q3

REPORT INFORMATION
  Report Type: 
  Country: None (occurrence: None)
  Receive Date: 20060828
  Receipt Date: 20060801
  Transmission Date: 20061208
  Serious: Yes (Hospitalization, Other)
  Sender: FDA-Public Use
  Company Number: 2006AP03586

PATIENT
  Age: 61 Year
  Sex: Female
  Weight: 42 kg

DRUGS (20)
  1. MEROPEN [Suspect]
     Indication: PYELONEPHRITIS
     Route: 041
     Dates: start: 20060520, end: 20060520
  2. MEROPEN [Suspect]
     Indication: SEPSIS
     Route: 041
     Dates: start: 20060520, end: 20060520
  3. MEROPEN [Suspect]
     Route: 041
     Dates: start: 20060521, end: 20060521
  4. MEROPEN [Suspect]
     Route: 041
     Dates: start: 20060521, end: 20060521
  5. MEROPEN [Suspect]
     Route: 041
     Dates: start: 20060522, end: 20060522
  6. MEROPEN [Suspect]
     Route: 041
     Dates: start: 20060522, end: 20060522
  7. MEROPEN [Suspect]
     Route: 041
     Dates: start: 20060523, end: 20060524
  8. MEROPEN [Suspect]
     Route: 041
     Dates: start: 20060523, end: 20060524
  9. FRAGMIN [Concomitant]
     Indication: DISSEMINATED INTRAVASCULAR COAGULATION
     Dosage: 5 KIU
     Route: 041
     Dates: start: 20060521, end: 20060525
  10. COAHIBITOR [Concomitant]
     Indication: DISSEMINATED INTRAVASCULAR COAGULATION
     Route: 041
     Dates: start: 20060520, end: 20060529
  11. KENKETSU VENILON-1 [Concomitant]
     Indication: PYELONEPHRITIS
     Route: 041
     Dates: start: 20060521, end: 20060523
  12. ALBUMIN (HUMAN) [Concomitant]
     Indication: HYPOALBUMINAEMIA
     Route: 041
     Dates: start: 20060521, end: 20060524
  13. GASTER [Concomitant]
     Indication: UPPER GASTROINTESTINAL HAEMORRHAGE
     Route: 041
     Dates: start: 20060521, end: 20060523
  14. NEUART [Concomitant]
     Indication: DISSEMINATED INTRAVASCULAR COAGULATION
     Dosage: 1.5 KIU
     Route: 041
     Dates: start: 20060522, end: 20060524
  15. PASIL [Concomitant]
     Indication: PYELONEPHRITIS
     Route: 041
     Dates: start: 20060523, end: 20060523
  16. PASIL [Concomitant]
     Route: 041
     Dates: start: 20060524, end: 20060601
  17. LASIX [Concomitant]
     Indication: PULMONARY OEDEMA
     Route: 040
     Dates: start: 20060522, end: 20060523
  18. LASIX [Concomitant]
     Indication: HEPATIC CIRRHOSIS
     Route: 040
     Dates: start: 20060522, end: 20060523
  19. LASIX [Concomitant]
     Route: 048
     Dates: start: 20060528
  20. LASIX [Concomitant]
     Route: 048
     Dates: start: 20060528

REACTIONS (2)
  - ACUTE RESPIRATORY FAILURE [None]
  - LUNG DISORDER [None]
